FAERS Safety Report 5145936-1 (Version None)
Quarter: 2006Q4

REPORT INFORMATION
  Report Type: 
  Country: None (occurrence: None)
  Receive Date: 20061108
  Receipt Date: 20061101
  Transmission Date: 20070319
  Serious: Yes (Other)
  Sender: FDA-Public Use
  Company Number: 2006UW21406

PATIENT
  Age: 48 Year
  Sex: Male

DRUGS (16)
  1. MERREM [Suspect]
     Route: 042
  2. ACETYLCYSTEINE [Concomitant]
     Route: 042
  3. AMPICILLIN SODIUM [Concomitant]
     Route: 042
  4. CANCIDAS [Concomitant]
     Route: 042
  5. HEPARIN [Concomitant]
     Route: 058
  6. HUMULIN 70/30 [Concomitant]
     Route: 042
  7. HYDROCORTISONE SODIUM [Concomitant]
  8. METOPROLOL TARTRATE [Concomitant]
     Route: 042
  9. METRONIDAZOLE [Concomitant]
     Route: 042
  10. MIDAZOLAM HYDROCHLORIDE [Concomitant]
     Route: 042
  11. NOREPINEPHRINE BITARTRATE [Concomitant]
     Route: 042
  12. OCTREOTIDE ACETATE [Concomitant]
     Route: 058
  13. PANTALOC [Concomitant]
     Route: 042
  14. TPN [Concomitant]
  15. TRASYLOL [Concomitant]
     Route: 042
  16. VANCOMYCIN [Concomitant]
     Route: 042

REACTIONS (2)
  - DERMATITIS EXFOLIATIVE [None]
  - RASH [None]
